FAERS Safety Report 17457669 (Version 2)
Quarter: 2021Q4

REPORT INFORMATION
  Report Type: Spontaneous
  Country: FR (occurrence: FR)
  Receive Date: 20200225
  Receipt Date: 20211029
  Transmission Date: 20220303
  Serious: Yes (Life-Threatening)
  Sender: FDA-Public Use
  Company Number: None

PATIENT
  Age: 63 Year
  Sex: Male
  Weight: 75 kg

DRUGS (10)
  1. HALDOL [Suspect]
     Active Substance: HALOPERIDOL
     Indication: Schizophrenia
     Route: 048
     Dates: start: 20191206
  2. TROPATEPINE HYDROCHLORIDE [Suspect]
     Active Substance: TROPATEPINE HYDROCHLORIDE
     Indication: Parkinsonism
     Route: 048
     Dates: start: 20191203, end: 20200205
  3. LOXAPINE SUCCINATE [Suspect]
     Active Substance: LOXAPINE SUCCINATE
     Indication: Psychotic disorder
     Route: 048
     Dates: start: 20191205, end: 20200205
  4. TRIMEPRAZINE [Suspect]
     Active Substance: TRIMEPRAZINE
     Indication: Sedation
     Route: 048
     Dates: start: 20191206, end: 20200205
  5. JANUMET [Concomitant]
     Active Substance: METFORMIN HYDROCHLORIDE\SITAGLIPTIN PHOSPHATE
     Route: 065
  6. VALPROATE SODIUM [Concomitant]
     Active Substance: VALPROATE SODIUM
     Route: 065
  7. MINERAL OIL [Concomitant]
     Active Substance: MINERAL OIL
     Route: 065
  8. VALIUM [Concomitant]
     Active Substance: DIAZEPAM
     Route: 065
  9. POLYETHYLENE GLYCOLS [Concomitant]
     Active Substance: POLYETHYLENE GLYCOLS
     Route: 065
  10. XARELTO [Concomitant]
     Active Substance: RIVAROXABAN
     Route: 065

REACTIONS (1)
  - Colitis ischaemic [Recovered/Resolved]

NARRATIVE: CASE EVENT DATE: 20200123
